FAERS Safety Report 4322851-4 (Version None)
Quarter: 2004Q1

REPORT INFORMATION
  Report Type: 
  Country: None (occurrence: None)
  Receive Date: 20040322
  Receipt Date: 20040312
  Transmission Date: 20041129
  Serious: Yes (Death, Hospitalization)
  Sender: FDA-Public Use
  Company Number: THQ2004A00279

PATIENT
  Age: 8 Decade
  Sex: Male

DRUGS (5)
  1. LEUPROLIDE ACETATE [Suspect]
     Indication: PROSTATE CANCER
     Dosage: 11.25 MG (11.25 MG, 1 IN 3 M)
     Dates: start: 20010202
  2. EULEXIN [Suspect]
     Dosage: 750 MG (250 MG, 3 IN  1 D)
     Dates: start: 20010125
  3. OMEGA-3 (OMEGA-3 TRIGLYCERIDES) (UNKNOWN) [Concomitant]
  4. COD-LIVER OIL (COD-LIVER OIL) (UNKNOWN) [Concomitant]
  5. GLUCOSAMINE (GLUCOSAMINE) (UNKNOWN) [Concomitant]

REACTIONS (9)
  - ABDOMINAL DISTENSION [None]
  - ASTHENIA [None]
  - CONSTIPATION [None]
  - DECREASED APPETITE [None]
  - DYSPNOEA [None]
  - FATIGUE [None]
  - HEPATIC CIRRHOSIS [None]
  - HEPATIC FAILURE [None]
  - WEIGHT DECREASED [None]
